FAERS Safety Report 16577717 (Version 1)
Quarter: 2019Q3

REPORT INFORMATION
  Report Type: Spontaneous
  Country: JP (occurrence: JP)
  Receive Date: 20190716
  Receipt Date: 20190716
  Transmission Date: 20191004
  Serious: Yes (Death, Life-Threatening, Other)
  Sender: FDA-Public Use
  Company Number: JP-MYLANLABS-2019M1063674

PATIENT
  Age: 82 Year
  Sex: Female
  Weight: 38 kg

DRUGS (7)
  1. XELJANZ [Suspect]
     Active Substance: TOFACITINIB CITRATE
     Dosage: 5 MILLIGRAM, BID
     Route: 048
     Dates: start: 20190325
  2. METOLATE [Suspect]
     Active Substance: METHOTREXATE
     Indication: RHEUMATOID ARTHRITIS
     Dosage: 4 MILLIGRAM, BID
     Route: 048
     Dates: start: 20160607
  3. HALFDIGOXIN [Suspect]
     Active Substance: DIGOXIN
     Indication: ATRIAL FIBRILLATION
     Dosage: 0.125 MILLIGRAM, QD
     Route: 048
     Dates: start: 20160119
  4. ACTEMRA [Suspect]
     Active Substance: TOCILIZUMAB
     Indication: RHEUMATOID ARTHRITIS
     Dosage: 360 MILLIGRAM, Q28D
     Route: 065
     Dates: end: 20190128
  5. LIXIANA [Suspect]
     Active Substance: EDOXABAN TOSYLATE
     Indication: ATRIAL FIBRILLATION
     Dosage: 30 MILLIGRAM, QD
     Route: 048
     Dates: start: 20160121
  6. PREDNISOLONE. [Suspect]
     Active Substance: PREDNISOLONE
     Indication: RHEUMATOID ARTHRITIS
     Dosage: 5 MILLIGRAM, QD
     Route: 048
     Dates: start: 20151013
  7. XELJANZ [Suspect]
     Active Substance: TOFACITINIB CITRATE
     Indication: RHEUMATOID ARTHRITIS
     Dosage: 5 MILLIGRAM, QD
     Route: 048
     Dates: start: 20190225, end: 20190324

REACTIONS (5)
  - Organising pneumonia [Not Recovered/Not Resolved]
  - Femoral neck fracture [Recovered/Resolved]
  - Atrial fibrillation [Not Recovered/Not Resolved]
  - Marasmus [Fatal]
  - Infection susceptibility increased [Unknown]

NARRATIVE: CASE EVENT DATE: 201510
